FAERS Safety Report 7555364-7 (Version None)
Quarter: 2011Q2

REPORT INFORMATION
  Report Type: 
  Country: None (occurrence: None)
  Receive Date: 20110617
  Receipt Date: 20110530
  Transmission Date: 20111010
  Serious: Yes (Hospitalization, Other)
  Sender: FDA-Public Use
  Company Number: JP-CEPHALON-2011002831

PATIENT
  Sex: Female
  Weight: 38 kg

DRUGS (12)
  1. RITUXIMAB [Concomitant]
     Dates: start: 20110428, end: 20110428
  2. FOSFOMYCIN SODIUM [Concomitant]
     Dates: start: 20110502, end: 20110506
  3. CEFOPERAZONE SODIUM [Suspect]
     Dates: start: 20110507, end: 20110512
  4. METOCLOPRAMIDE HYDROCHLORIDE [Concomitant]
     Dates: start: 20110404, end: 20110405
  5. SULBACTAM SODIUM [Concomitant]
     Dates: start: 20110507, end: 20110512
  6. AMINO ACIDS NOS W/CARBOHYD. NOS/ELECTROL. NOS [Concomitant]
     Dates: start: 20110516, end: 20110603
  7. GLUCOSE [Concomitant]
     Dates: start: 20110407, end: 20110425
  8. BENDAMUSTINE HCL [Suspect]
     Indication: LYMPHOMA
     Route: 042
     Dates: start: 20110404
  9. FILGRASTIM [Concomitant]
     Dates: start: 20110506, end: 20110508
  10. THROMBIN LOCAL SOLUTION [Concomitant]
     Dates: start: 20110507, end: 20110509
  11. CEFTRIAXONE AND DEXTROSE IN DUPLEX CONTAINER [Concomitant]
     Dates: start: 20110415, end: 20110421
  12. GLYCYRRHIZIC ACID, AMMONIUM SALT [Concomitant]

REACTIONS (10)
  - PYREXIA [None]
  - MULTI-ORGAN FAILURE [None]
  - DISSEMINATED INTRAVASCULAR COAGULATION [None]
  - CLOSTRIDIAL INFECTION [None]
  - RHINORRHOEA [None]
  - SEPSIS [None]
  - RENAL DISORDER [None]
  - DIARRHOEA [None]
  - HEPATIC FUNCTION ABNORMAL [None]
  - HYPOTENSION [None]
